FAERS Safety Report 23101441 (Version 4)
Quarter: 2024Q1

REPORT INFORMATION
  Report Type: Spontaneous
  Country: PL (occurrence: PL)
  Receive Date: 20231024
  Receipt Date: 20240227
  Transmission Date: 20240410
  Serious: Yes (Death, Hospitalization, Disabling, Other)
  Sender: FDA-Public Use
  Company Number: PL-EMA-DD-20190816-sahu_k-123347

PATIENT
  Age: 10 Year
  Sex: Female

DRUGS (10)
  1. AZATHIOPRINE [Suspect]
     Active Substance: AZATHIOPRINE
     Indication: Immunosuppressant drug therapy
     Dosage: UNK
     Route: 065
  2. CYCLOPHOSPHAMIDE [Suspect]
     Active Substance: CYCLOPHOSPHAMIDE
     Indication: Immunomodulatory therapy
     Dosage: UNK
     Route: 065
  3. MYCOPHENOLATE MOFETIL [Suspect]
     Active Substance: MYCOPHENOLATE MOFETIL
     Indication: Immunomodulatory therapy
     Dosage: UNK
     Route: 065
  4. MYCOPHENOLATE MOFETIL [Suspect]
     Active Substance: MYCOPHENOLATE MOFETIL
     Indication: Neurosarcoidosis
  5. MABTHERA [Suspect]
     Active Substance: RITUXIMAB
     Indication: Neurosarcoidosis
     Route: 065
  6. METHYLPREDNISOLONE [Suspect]
     Active Substance: METHYLPREDNISOLONE
     Indication: Immunosuppression
     Dosage: UNK
     Route: 065
  7. METHYLPREDNISOLONE [Suspect]
     Active Substance: METHYLPREDNISOLONE
     Indication: Steroid therapy
  8. PREDNISONE [Suspect]
     Active Substance: PREDNISONE
     Indication: Immunosuppression
     Dosage: UNK
     Route: 065
  9. PREDNISONE [Suspect]
     Active Substance: PREDNISONE
     Indication: Steroid therapy
  10. RITUXIMAB [Suspect]
     Active Substance: RITUXIMAB
     Indication: Immunosuppressant drug therapy
     Dosage: UNK
     Route: 065

REACTIONS (14)
  - Germ cell cancer [Fatal]
  - Renal failure [Fatal]
  - Disseminated intravascular coagulation [Fatal]
  - Cerebral atrophy [Fatal]
  - Pancytopenia [Fatal]
  - Therapy non-responder [Fatal]
  - Concomitant disease progression [Fatal]
  - Blindness [Unknown]
  - Extrapyramidal disorder [Unknown]
  - Central nervous system function test abnormal [Unknown]
  - Aphasia [Unknown]
  - Quadriparesis [Unknown]
  - Sleep disorder [Unknown]
  - Dementia [Not Recovered/Not Resolved]
